FAERS Safety Report 6861358-7 (Version None)
Quarter: 2010Q3

REPORT INFORMATION
  Report Type: 
  Country: None (occurrence: None)
  Receive Date: 20100715
  Receipt Date: 20100705
  Transmission Date: 20110219
  Serious: Yes (Life-Threatening, Hospitalization)
  Sender: FDA-Public Use
  Company Number: 2009SP027200

PATIENT
  Age: 57 Year
  Weight: 100 kg

DRUGS (13)
  1. ROCURONIUM BROMIDE [Suspect]
     Indication: INDUCTION OF ANAESTHESIA
     Dosage: 100MG;ONCE;INBO
     Route: 040
     Dates: start: 20090922, end: 20090922
  2. ULTIVA [Suspect]
     Indication: INDUCTION OF ANAESTHESIA
     Dosage: 1200 MCG;ONCE;IV
     Route: 042
     Dates: start: 20090922, end: 20090922
  3. DIPRIVAN [Concomitant]
  4. BETA BLOCKER [Concomitant]
  5. NEXIUM [Concomitant]
  6. LEVOTHYROXINE SODIUM [Concomitant]
  7. TAHOR [Concomitant]
  8. ASPEGIC 1000 [Concomitant]
  9. PLAVIX [Concomitant]
  10. LOVENOX [Concomitant]
  11. XANAX [Concomitant]
  12. ATARAX [Concomitant]
  13. TENORMIN [Concomitant]

REACTIONS (3)
  - ANAPHYLACTIC SHOCK [None]
  - CARDIAC ARREST [None]
  - SKIN TEST POSITIVE [None]
